FAERS Safety Report 7956803-X (Version None)
Quarter: 2011Q4

REPORT INFORMATION
  Report Type: 
  Country: None (occurrence: None)
  Receive Date: 20111205
  Receipt Date: 20111011
  Transmission Date: 20120403
  Serious: No
  Sender: FDA-Public Use
  Company Number: US-BAYER-2011-099112

PATIENT
  Age: 94 Year
  Sex: Female
  Weight: 68.027 kg

DRUGS (2)
  1. DIGOXIN [Concomitant]
  2. ALEVE (CAPLET) [Suspect]
     Indication: ARTHRITIS
     Dosage: 2 DF, QD
     Dates: start: 20110927, end: 20110930

REACTIONS (2)
  - OESOPHAGEAL PAIN [None]
  - ABDOMINAL DISCOMFORT [None]
